FAERS Safety Report 21184916 (Version 1)
Quarter: 2022Q3

REPORT INFORMATION
  Report Type: Spontaneous
  Country: US (occurrence: US)
  Receive Date: 20220808
  Receipt Date: 20220808
  Transmission Date: 20221027
  Serious: Yes (Other)
  Sender: FDA-Public Use
  Company Number: US-MLMSERVICE-20220728-3699479-1

PATIENT
  Age: 13 Month
  Sex: Male

DRUGS (4)
  1. CARBOPLATIN [Suspect]
     Active Substance: CARBOPLATIN
     Indication: Ganglioglioma
     Dosage: 175  MG/M2, 12 WEEK INDUCTION PHASE
     Route: 065
  2. CARBOPLATIN [Suspect]
     Active Substance: CARBOPLATIN
     Dosage: 2 MAINTENANCE CYCLES
     Route: 065
  3. VINCRISTINE [Suspect]
     Active Substance: VINCRISTINE
     Indication: Ganglioglioma
     Dosage: 1.5 MG/M2, 12 WEEK INDUCTION PHASE
     Route: 065
  4. VINCRISTINE [Suspect]
     Active Substance: VINCRISTINE
     Dosage: 2 MAINTENANCE CYCLES
     Route: 065

REACTIONS (4)
  - Ascites [Recovered/Resolved]
  - Cerebrospinal fluid retention [Recovering/Resolving]
  - Vomiting [Unknown]
  - Diarrhoea [Unknown]
